FAERS Safety Report 18643511 (Version 1)
Quarter: 2020Q4

REPORT INFORMATION
  Report Type: Spontaneous
  Country: US (occurrence: US)
  Receive Date: 20201221
  Receipt Date: 20201221
  Transmission Date: 20210114
  Serious: Yes (Hospitalization)
  Sender: FDA-Public Use
  Company Number: US-TEVA-2020-US-1860399

PATIENT
  Age: 23 Year
  Sex: Female
  Weight: 112 kg

DRUGS (8)
  1. FENTANYL. [Suspect]
     Active Substance: FENTANYL
     Indication: EPIDURAL ANAESTHESIA
     Route: 008
  2. BUPIVACAINE. [Suspect]
     Active Substance: BUPIVACAINE
     Indication: EPIDURAL ANAESTHESIA
     Dosage: 10 ML OF IN DIVIDED DOSES
     Route: 008
  3. MORPHINE [Concomitant]
     Active Substance: MORPHINE
     Indication: POSTOPERATIVE ANALGESIA
     Route: 008
  4. WARFARIN [Suspect]
     Active Substance: WARFARIN
     Indication: ANTICOAGULANT THERAPY
     Route: 065
  5. LABETALOL [Suspect]
     Active Substance: LABETALOL\LABETALOL HYDROCHLORIDE
     Indication: BLOOD PRESSURE MANAGEMENT
     Route: 048
  6. HEPARIN [Suspect]
     Active Substance: HEPARIN SODIUM
     Indication: ANTICOAGULANT THERAPY
     Route: 050
  7. BUPIVACAINE. [Suspect]
     Active Substance: BUPIVACAINE
     Dosage: 9ML CONTAINING FENTANYL
     Route: 008
  8. METHYLERGONOVINE [Concomitant]
     Active Substance: METHYLERGONOVINE
     Indication: UTERINE HYPERTONUS
     Dosage: GIVEN IN ALIQUOTS OVER 4 MINUTES

REACTIONS (3)
  - Live birth [Unknown]
  - Maternal exposure during pregnancy [Unknown]
  - Abdominal wall haematoma [Recovered/Resolved]
